FAERS Safety Report 19399707 (Version 1)
Quarter: 2021Q2

REPORT INFORMATION
  Report Type: Spontaneous
  Country: DE (occurrence: DE)
  Receive Date: 20210610
  Receipt Date: 20210610
  Transmission Date: 20210717
  Serious: Yes (Other)
  Sender: FDA-Public Use
  Company Number: DE-MYLANLABS-2021M1033514

PATIENT
  Age: 52 Year
  Sex: Female

DRUGS (4)
  1. RIFABUTIN. [Suspect]
     Active Substance: RIFABUTIN
     Indication: DISSEMINATED TUBERCULOSIS
     Dosage: UNK
  2. GANCICLOVIR. [Concomitant]
     Active Substance: GANCICLOVIR
     Indication: CYTOMEGALOVIRUS VIRAEMIA
     Dosage: UNK
     Route: 042
  3. AZITHROMYCIN MYLAN [Suspect]
     Active Substance: AZITHROMYCIN ANHYDROUS
     Indication: DISSEMINATED TUBERCULOSIS
     Dosage: UNK
  4. ETHAMBUTOL [Suspect]
     Active Substance: ETHAMBUTOL HYDROCHLORIDE
     Indication: DISSEMINATED TUBERCULOSIS
     Dosage: UNK

REACTIONS (10)
  - Gastrointestinal motility disorder [Unknown]
  - Abdominal pain [Unknown]
  - Cytomegalovirus viraemia [Unknown]
  - Hepatotoxicity [Unknown]
  - Hypercapnia [Unknown]
  - Organ failure [Unknown]
  - Drug intolerance [Unknown]
  - Condition aggravated [Unknown]
  - Renal failure [Unknown]
  - Respiratory failure [Unknown]
